FAERS Safety Report 14911795 (Version 1)
Quarter: 2018Q2

REPORT INFORMATION
  Report Type: Spontaneous
  Country: US (occurrence: US)
  Receive Date: 20180518
  Receipt Date: 20180518
  Transmission Date: 20180711
  Serious: Yes (Death, Hospitalization, Other)
  Sender: FDA-Public Use
  Company Number: US-ZYDUS-020108

PATIENT
  Sex: Male

DRUGS (5)
  1. PREDNISONE. [Suspect]
     Active Substance: PREDNISONE
     Indication: PRODUCT USED FOR UNKNOWN INDICATION
     Route: 065
  2. ADALIMUMAB [Suspect]
     Active Substance: ADALIMUMAB
     Indication: PRODUCT USED FOR UNKNOWN INDICATION
     Route: 065
  3. DEXAMETHASONE. [Suspect]
     Active Substance: DEXAMETHASONE
     Indication: HISTIOCYTOSIS HAEMATOPHAGIC
     Route: 065
  4. METHOTREXATE. [Suspect]
     Active Substance: METHOTREXATE
     Indication: PRODUCT USED FOR UNKNOWN INDICATION
     Route: 065
  5. ETOPOSIDE. [Suspect]
     Active Substance: ETOPOSIDE
     Indication: HISTIOCYTOSIS HAEMATOPHAGIC
     Route: 065

REACTIONS (29)
  - Decreased appetite [Unknown]
  - Respiratory alkalosis [Unknown]
  - Normocytic anaemia [Unknown]
  - Histiocytosis haematophagic [Fatal]
  - Pyrexia [Unknown]
  - Troponin I increased [Unknown]
  - Acute kidney injury [Unknown]
  - Splenomegaly [Unknown]
  - Erythrophagocytosis [Unknown]
  - Fungal infection [Unknown]
  - Serum ferritin increased [Unknown]
  - Hypertriglyceridaemia [Unknown]
  - Fatigue [Unknown]
  - Cough [Unknown]
  - Transaminases increased [Unknown]
  - Hypothermia [Unknown]
  - Hypotension [Unknown]
  - Candida infection [Unknown]
  - Viral infection [Fatal]
  - Dyspnoea [Unknown]
  - Metabolic acidosis [Unknown]
  - Thrombocytopenia [Unknown]
  - Sepsis [Unknown]
  - Stenotrophomonas infection [Unknown]
  - Respiratory failure [Unknown]
  - Nausea [Unknown]
  - Confusional state [Unknown]
  - Lymphopenia [Unknown]
  - Leukopenia [Unknown]
